FAERS Safety Report 23704201 (Version 3)
Quarter: 2024Q2

REPORT INFORMATION
  Report Type: Report from Study
  Country: US (occurrence: US)
  Receive Date: 20240404
  Receipt Date: 20240506
  Transmission Date: 20240716
  Serious: Yes (Other)
  Sender: FDA-Public Use
  Company Number: US-JNJFOC-20240376418

PATIENT
  Age: 41 Year
  Sex: Male

DRUGS (1)
  1. SPRAVATO [Suspect]
     Active Substance: ESKETAMINE
     Indication: Depression
     Dosage: ^56 MG 8 TOTAL DOSES^?RECENT DOSE 84 MG ON 28-MAR-2024.
     Dates: start: 20240228, end: 20240322

REACTIONS (4)
  - Mental impairment [Unknown]
  - Headache [Unknown]
  - Vision blurred [Unknown]
  - Gait disturbance [Unknown]

NARRATIVE: CASE EVENT DATE: 20240101
